FAERS Safety Report 21922630 (Version 7)
Quarter: 2025Q1

REPORT INFORMATION
  Report Type: Report from Study
  Country: BR (occurrence: BR)
  Receive Date: 20230128
  Receipt Date: 20250206
  Transmission Date: 20250409
  Serious: Yes (Other)
  Sender: TAKEDA
  Company Number: BR-TAKEDA-2023TUS009890

PATIENT
  Age: 68 Year
  Sex: Female

DRUGS (4)
  1. VEDOLIZUMAB [Suspect]
     Active Substance: VEDOLIZUMAB
     Indication: Colitis ulcerative
     Dosage: 300 MILLIGRAM, Q4WEEKS
     Dates: start: 1998
  2. NPH INSULIN [Concomitant]
     Active Substance: INSULIN BEEF
     Indication: Diabetes mellitus
     Dosage: UNK UNK, TID
  3. CANNABIDIOL [Concomitant]
     Active Substance: CANNABIDIOL
     Dosage: UNK UNK, BID
  4. DIPYRONE [Concomitant]
     Active Substance: DIPYRONE

REACTIONS (10)
  - Disability [Unknown]
  - Hip fracture [Unknown]
  - Diabetes mellitus [Unknown]
  - Pelvic fracture [Unknown]
  - Fracture [Unknown]
  - Osteoporosis [Unknown]
  - Product preparation error [Unknown]
  - Inappropriate schedule of product administration [Unknown]
  - Product availability issue [Unknown]
  - Fall [Unknown]

NARRATIVE: CASE EVENT DATE: 20210423
